FAERS Safety Report 21334066 (Version 3)
Quarter: 2022Q4

REPORT INFORMATION
  Report Type: Report from Study
  Country: FR (occurrence: FR)
  Receive Date: 20220914
  Receipt Date: 20221005
  Transmission Date: 20230113
  Serious: Yes (Hospitalization, Other)
  Sender: FDA-Public Use
  Company Number: FR-ROCHE-3177023

PATIENT
  Age: 55 Year
  Sex: Male

DRUGS (21)
  1. ATEZOLIZUMAB [Suspect]
     Active Substance: ATEZOLIZUMAB
     Indication: Colorectal cancer metastatic
     Dosage: DATE OF LAST ADMINISTRATION 11/JUL/2022?CYCLE 07
     Route: 041
     Dates: start: 20220303
  2. ATEZOLIZUMAB [Suspect]
     Active Substance: ATEZOLIZUMAB
     Dosage: 4TH CYCLE
     Route: 041
     Dates: start: 20220506
  3. ATEZOLIZUMAB [Suspect]
     Active Substance: ATEZOLIZUMAB
     Dosage: CYCLE 07
     Route: 041
     Dates: start: 20220711
  4. CAPECITABINE [Suspect]
     Active Substance: CAPECITABINE
     Indication: Colorectal cancer metastatic
     Dosage: CYCLE 07?DATE OF LAST ADMINISTRATION 25/JUL/2022
     Route: 048
     Dates: start: 20220303, end: 20220725
  5. CAPECITABINE [Suspect]
     Active Substance: CAPECITABINE
     Dosage: 4TH CYCLE
     Route: 048
     Dates: start: 20220506
  6. CAPECITABINE [Suspect]
     Active Substance: CAPECITABINE
     Dosage: CYCLE 07
     Route: 048
     Dates: start: 20220725
  7. BEVACIZUMAB [Suspect]
     Active Substance: BEVACIZUMAB
     Indication: Colorectal cancer metastatic
     Dosage: DATE OF LAST ADMINISTRATION 11/JUL/2022?CYCLE 07
     Route: 041
  8. DEVICE\YTTRIUM Y-90 [Suspect]
     Active Substance: DEVICE\YTTRIUM Y-90
     Indication: Colorectal cancer metastatic
     Dosage: DATE OF LAST ADMINISTRATION 15/APR/2022
     Route: 065
     Dates: start: 20220316
  9. DEVICE\YTTRIUM Y-90 [Suspect]
     Active Substance: DEVICE\YTTRIUM Y-90
     Route: 065
     Dates: start: 20220415
  10. OXALIPLATIN [Suspect]
     Active Substance: OXALIPLATIN
     Indication: Colorectal cancer metastatic
     Dosage: DATE OF LAST ADMINISTRATION 30/MAY/2022?CYCLE 05
     Route: 041
     Dates: start: 20220303, end: 20220530
  11. OXALIPLATIN [Suspect]
     Active Substance: OXALIPLATIN
     Dosage: 4TH CYCLE
     Route: 041
     Dates: start: 20220506
  12. OXALIPLATIN [Suspect]
     Active Substance: OXALIPLATIN
     Dosage: 5TH CYCLE
     Route: 041
     Dates: start: 20220530
  13. ACARIZAX [Concomitant]
     Active Substance: DERMATOPHAGOIDES FARINAE\DERMATOPHAGOIDES PTERONYSSINUS
     Indication: Asthma
     Dates: start: 20211209
  14. ATORVASTATIN [Concomitant]
     Active Substance: ATORVASTATIN
     Indication: Dyslipidaemia
  15. ORALAIR [Concomitant]
     Active Substance: ANTHOXANTHUM ODORATUM POLLEN\DACTYLIS GLOMERATA POLLEN\LOLIUM PERENNE POLLEN\PHLEUM PRATENSE POLLEN\
     Indication: Asthma
     Dates: start: 20211209
  16. CETIRIZINE HYDROCHLORIDE [Concomitant]
     Active Substance: CETIRIZINE HYDROCHLORIDE
     Indication: Asthma
  17. VERAPAMIL [Concomitant]
     Active Substance: VERAPAMIL HYDROCHLORIDE
     Indication: Hypertension
  18. SERETIDE [Concomitant]
     Active Substance: FLUTICASONE PROPIONATE\SALMETEROL XINAFOATE
     Indication: Asthma
     Dosage: 500/50 MCG
  19. ALBUTEROL [Concomitant]
     Active Substance: ALBUTEROL
     Indication: Asthma
  20. RAMIPRIL [Concomitant]
     Active Substance: RAMIPRIL
     Indication: Hypertension
  21. SINGULAIR [Concomitant]
     Active Substance: MONTELUKAST SODIUM
     Indication: Asthma

REACTIONS (5)
  - Portal vein thrombosis [Unknown]
  - Hepatic cytolysis [Unknown]
  - Hepatocellular injury [Unknown]
  - Venoocclusive liver disease [Recovering/Resolving]
  - Cholestasis [Unknown]

NARRATIVE: CASE EVENT DATE: 20220703
